FAERS Safety Report 13353949 (Version 1)
Quarter: 2017Q1

REPORT INFORMATION
  Report Type: Report from Study
  Country: US (occurrence: US)
  Receive Date: 20170321
  Receipt Date: 20170321
  Transmission Date: 20170429
  Serious: Yes (Hospitalization)
  Sender: FDA-Public Use
  Company Number: US-GILEAD-2016-0202568

PATIENT
  Age: 11 Year
  Sex: Female
  Weight: 32 kg

DRUGS (18)
  1. TYLENOL [Concomitant]
     Active Substance: ACETAMINOPHEN
     Dosage: 325 MG, QID
     Route: 048
  2. VITAMIN D3 [Concomitant]
     Active Substance: CHOLECALCIFEROL
     Dosage: 1000 UNITS, QD
     Route: 048
  3. TADALAFIL [Concomitant]
     Active Substance: TADALAFIL
  4. ALBUTEROL                          /00139501/ [Concomitant]
     Active Substance: ALBUTEROL
     Dosage: 4X 90 MCG, QID
     Route: 055
  5. TUMS ULTRA [Concomitant]
     Active Substance: CALCIUM CARBONATE
     Dosage: 400 MG, BID
     Route: 048
  6. AMBRISENTAN [Suspect]
     Active Substance: AMBRISENTAN
     Indication: SCLERODERMA
  7. PREDNISONE. [Concomitant]
     Active Substance: PREDNISONE
  8. ZOFRAN [Concomitant]
     Active Substance: ONDANSETRON HYDROCHLORIDE
     Dosage: 4 MG, TID
     Route: 048
  9. PREVACID [Concomitant]
     Active Substance: LANSOPRAZOLE
     Dosage: 30 MG, QD
     Route: 048
  10. CELLCEPT [Concomitant]
     Active Substance: MYCOPHENOLATE MOFETIL\MYCOPHENOLATE MOFETIL HYDROCHLORIDE
     Dosage: 500 MG, BID
     Route: 048
  11. NIFEDICAL XL [Concomitant]
     Active Substance: NIFEDIPINE
     Dosage: 30 MG, QD
  12. OXYGEN. [Concomitant]
     Active Substance: OXYGEN
     Dosage: 1 UNK, UNK
  13. AMBRISENTAN [Suspect]
     Active Substance: AMBRISENTAN
     Indication: PULMONARY HYPERTENSION
     Dosage: 5 MG, QD
     Route: 048
     Dates: start: 20150825
  14. ORENITRAM [Suspect]
     Active Substance: TREPROSTINIL
     Indication: PULMONARY HYPERTENSION
     Dosage: 2.5 MG, TID
     Route: 048
  15. ADCIRCA [Concomitant]
     Active Substance: TADALAFIL
     Dosage: 30 MG, QD
     Route: 048
  16. CARDURA [Concomitant]
     Active Substance: DOXAZOSIN MESYLATE
  17. BENADRYL [Concomitant]
     Active Substance: DIPHENHYDRAMINE HYDROCHLORIDE
     Dosage: 6.25 MG, Q4HR
     Route: 048
  18. MOTRIN [Concomitant]
     Active Substance: IBUPROFEN
     Dosage: 300 MG, QID
     Route: 048

REACTIONS (6)
  - Chest pain [Unknown]
  - Abdominal pain upper [Recovered/Resolved]
  - Abdominal discomfort [Recovered/Resolved]
  - Constipation [Recovered/Resolved]
  - Off label use [Not Recovered/Not Resolved]
  - Diarrhoea [Recovered/Resolved]

NARRATIVE: CASE EVENT DATE: 20150827
